FAERS Safety Report 7935251-2 (Version None)
Quarter: 2011Q4

REPORT INFORMATION
  Report Type: 
  Country: None (occurrence: None)
  Receive Date: 20111122
  Receipt Date: 20111118
  Transmission Date: 20120403
  Serious: Yes (Hospitalization)
  Sender: FDA-Public Use
  Company Number: FR-PFIZER INC-2011210308

PATIENT
  Age: 76 Year
  Sex: Female

DRUGS (13)
  1. ALDACTONE [Concomitant]
  2. ROPINIROLE HYDROCHLORIDE [Concomitant]
  3. ATORVASTATIN CALCIUM [Concomitant]
  4. CERIS [Concomitant]
  5. ASPIRIN [Concomitant]
  6. TELMISARTAN [Concomitant]
  7. COLCHICINE [Concomitant]
  8. ZOLOFT [Suspect]
     Indication: AGITATION
     Dosage: 50 MG, 1X/DAY
     Route: 048
     Dates: start: 20110414, end: 20110808
  9. REQUIP [Concomitant]
  10. LAMICTAL [Concomitant]
  11. OXAZEPAM [Concomitant]
  12. TRILEPTAL [Concomitant]
  13. VERATRAN [Concomitant]

REACTIONS (2)
  - ABNORMAL BEHAVIOUR [None]
  - HYPONATRAEMIA [None]
